FAERS Safety Report 9352214 (Version 1)
Quarter: 2013Q2

REPORT INFORMATION
  Report Type: Spontaneous
  Country: BH (occurrence: None)
  Receive Date: 20130612
  Receipt Date: 20130612
  Transmission Date: 20140414
  Serious: No
  Sender: FDA-Public Use
  Company Number: THQ2013A04303

PATIENT
  Age: 62 Year
  Sex: Male

DRUGS (3)
  1. ACTOS (PIOGLITAZONE HYDROCHLORIDE) [Suspect]
     Indication: TYPE 2 DIABETES MELLITUS
     Route: 048
     Dates: start: 201010, end: 201305
  2. AMARYL [Concomitant]
  3. GLUCOPHAGE [Concomitant]

REACTIONS (1)
  - Maculopathy [None]
